FAERS Safety Report 17091099 (Version 3)
Quarter: 2023Q2

REPORT INFORMATION
  Report Type: Spontaneous
  Country: US (occurrence: US)
  Receive Date: 20191129
  Receipt Date: 20230607
  Transmission Date: 20230722
  Serious: Yes (Other)
  Sender: FDA-Public Use
  Company Number: None

PATIENT
  Sex: Female

DRUGS (1)
  1. TYKERB [Suspect]
     Active Substance: LAPATINIB DITOSYLATE
     Indication: Breast cancer female
     Dosage: 1250 MG, QD
     Route: 048
     Dates: start: 20190507

REACTIONS (3)
  - Breast cancer female [Unknown]
  - Malignant neoplasm progression [Unknown]
  - Weight increased [Unknown]
